FAERS Safety Report 5083009-7 (Version None)
Quarter: 2006Q3

REPORT INFORMATION
  Report Type: 
  Country: None (occurrence: None)
  Receive Date: 20060814
  Receipt Date: 20060728
  Transmission Date: 20061208
  Serious: Yes (Other)
  Sender: FDA-Public Use
  Company Number: 033-14

PATIENT
  Age: 76 Year
  Sex: Female
  Weight: 69 kg

DRUGS (11)
  1. TEVETEN HCT [Suspect]
     Indication: HYPERTENSION
     Dates: start: 20060524
  2. ACETYLSALICYLIC ACID SRT [Concomitant]
  3. ALTACE [Concomitant]
  4. ATIVAN [Concomitant]
  5. BISOPROLOL FUMARATE [Concomitant]
  6. BISOPROLOL FUMARATE [Concomitant]
  7. GLYCERYL TRINITRATE [Concomitant]
  8. ALENDRONATE SODIUM [Concomitant]
  9. NEO CAT-D [Concomitant]
  10. LIPEDIT SUPRA [Concomitant]
  11. FLUTICASONE PROPIONATE [Concomitant]

REACTIONS (3)
  - HYPERTENSION [None]
  - PAIN IN EXTREMITY [None]
  - PANIC REACTION [None]
